FAERS Safety Report 6633191-2 (Version None)
Quarter: 2010Q1

REPORT INFORMATION
  Report Type: 
  Country: None (occurrence: None)
  Receive Date: 20100312
  Receipt Date: 20100308
  Transmission Date: 20100710
  Serious: Yes (Death, Other)
  Sender: FDA-Public Use
  Company Number: PHHY2010MX11728

PATIENT
  Sex: Female

DRUGS (8)
  1. TEGRETOL [Suspect]
     Indication: CONVULSION
     Dosage: 3 TABLETS/ DAY
     Route: 048
     Dates: start: 20000101
  2. TEGRETOL [Suspect]
     Indication: EPILEPSY
     Dosage: 20 MG/ML, DAILY
     Route: 048
     Dates: start: 20060701
  3. CATAFLAM [Suspect]
     Dosage: 180 MG, UNK
     Dates: start: 20060701, end: 20090810
  4. CATAFLAM [Suspect]
     Indication: ARTHRITIS
     Dosage: 1 TABLET/DAY
     Route: 048
     Dates: start: 20010101
  5. CATAFLAM [Suspect]
     Indication: ARTHRITIS
     Dosage: 1 APPLICATION/ DAY
     Dates: start: 20010101
  6. NIVADOR [Suspect]
     Dosage: UNK
     Dates: end: 20091001
  7. PHENYTOIN SODIUM CAP [Concomitant]
     Dosage: UNK
     Dates: start: 19350101
  8. RIVOTRIL [Concomitant]
     Dosage: UNK
     Dates: start: 19350101

REACTIONS (6)
  - ASPIRATION [None]
  - BRONCHOPNEUMONIA [None]
  - DEPRESSION [None]
  - EATING DISORDER [None]
  - INTESTINAL ANGINA [None]
  - RESPIRATORY ARREST [None]
